FAERS Safety Report 4830667-5 (Version None)
Quarter: 2005Q4

REPORT INFORMATION
  Report Type: 
  Country: None (occurrence: None)
  Receive Date: 20051114
  Receipt Date: 20051103
  Transmission Date: 20060501
  Serious: Yes (Death)
  Sender: FDA-Public Use
  Company Number: 2005-11-0223

PATIENT
  Sex: Female

DRUGS (9)
  1. ALBUTEROL SULFATE HFA [Suspect]
     Dosage: 2 PUFFS QID PRN INHALATION
     Route: 055
  2. ATROVENT [Suspect]
     Indication: CHRONIC OBSTRUCTIVE PULMONARY DISEASE
     Dosage: 500MCG QID INHALATION
     Route: 055
  3. AMINOPHYLLINE [Suspect]
     Dosage: 225 MG
  4. CARBOCISTEINE [Suspect]
     Dosage: 750 TID
  5. LEVOFLOXACIN [Suspect]
     Dosage: 500 MG BID
  6. FUROSEMIDE [Suspect]
     Dosage: 40 MG QD
  7. TRAMADOL [Suspect]
     Dosage: 50 MG TID
  8. PREDNISOLONE [Suspect]
     Dosage: 5 MG
  9. SALBUTAMOL SULPHATE INHALATION SOLUTION [Suspect]
     Dosage: 2.5MG PRN

REACTIONS (1)
  - INFECTIVE EXACERBATION OF CHRONIC OBSTRUCTIVE AIRWAYS DISEASE [None]
